FAERS Safety Report 6544335-5 (Version None)
Quarter: 2010Q1

REPORT INFORMATION
  Report Type: 
  Country: None (occurrence: None)
  Receive Date: 20100120
  Receipt Date: 20100120
  Transmission Date: 20100710
  Serious: Yes (Other)
  Sender: FDA-Public Use
  Company Number: None

PATIENT
  Age: 59 Year
  Sex: Male
  Weight: 122.4712 kg

DRUGS (1)
  1. TYLENOL-500 [Suspect]
     Indication: PAIN
     Dates: start: 20090910, end: 20100117

REACTIONS (4)
  - GASTROINTESTINAL DISORDER [None]
  - IMPAIRED WORK ABILITY [None]
  - MALAISE [None]
  - PRODUCT QUALITY ISSUE [None]
